FAERS Safety Report 10427155 (Version 2)
Quarter: 2014Q4

REPORT INFORMATION
  Report Type: Spontaneous
  Country: US (occurrence: None)
  Receive Date: 20140725
  Receipt Date: 20141023
  Transmission Date: 20150528
  Serious: No
  Sender: FDA-Public Use
  Company Number: AP356-00937-SPO-US

PATIENT
  Age: 52 Year
  Sex: Female
  Weight: 91 kg

DRUGS (4)
  1. LOSARTAN (LOSARTAN) [Concomitant]
     Active Substance: LOSARTAN
  2. PROZAC (FLUOXETINE) [Concomitant]
  3. BELVIQ [Suspect]
     Active Substance: LORCASERIN HYDROCHLORIDE
     Indication: OBESITY
     Dosage: 20 MG,  2 IN 1 D, ORAL
     Route: 048
     Dates: start: 20140613
  4. RISPERDAL [Concomitant]
     Active Substance: RISPERIDONE

REACTIONS (4)
  - Abdominal discomfort [None]
  - Menopausal symptoms [None]
  - Upper respiratory tract infection [None]
  - Weight increased [None]

NARRATIVE: CASE EVENT DATE: 2014
